FAERS Safety Report 12687156 (Version 1)
Quarter: 2016Q3

REPORT INFORMATION
  Report Type: Spontaneous
  Country: FR (occurrence: FR)
  Receive Date: 20160826
  Receipt Date: 20160826
  Transmission Date: 20161109
  Serious: Yes (Hospitalization, Other)
  Sender: FDA-Public Use
  Company Number: FR-BRISTOL-MYERS SQUIBB COMPANY-BMS-2016-068788

PATIENT
  Age: 85 Year
  Sex: Female

DRUGS (4)
  1. ELIQUIS [Suspect]
     Active Substance: APIXABAN
     Indication: CEREBROVASCULAR ACCIDENT PROPHYLAXIS
     Dosage: 2.5 MG, BID
     Route: 048
     Dates: start: 201605, end: 20160719
  2. BISOCE [Concomitant]
     Active Substance: BISOPROLOL
     Indication: PRODUCT USED FOR UNKNOWN INDICATION
     Route: 065
  3. HYDREA [Concomitant]
     Active Substance: HYDROXYUREA
     Indication: PRODUCT USED FOR UNKNOWN INDICATION
     Route: 065
  4. FRAGMINE [Suspect]
     Active Substance: DALTEPARIN SODIUM
     Indication: ATRIAL FIBRILLATION
     Dosage: 1 DF, BID
     Route: 058
     Dates: start: 20160705, end: 20160719

REACTIONS (6)
  - Gastrointestinal haemorrhage [Recovered/Resolved]
  - Packed red blood cell transfusion [Unknown]
  - Anaemia [Recovered/Resolved]
  - Contraindicated product administered [Unknown]
  - Melaena [Recovered/Resolved]
  - Gastrointestinal ulcer [Unknown]

NARRATIVE: CASE EVENT DATE: 201607
